FAERS Safety Report 25734831 (Version 4)
Quarter: 2025Q4

REPORT INFORMATION
  Report Type: Spontaneous
  Country: US (occurrence: US)
  Receive Date: 20250828
  Receipt Date: 20251029
  Transmission Date: 20260118
  Serious: No
  Sender: BIOGEN
  Company Number: US-BIOGEN-2025BI01321729

PATIENT
  Age: 45 Year
  Sex: Male

DRUGS (2)
  1. VUMERITY [Suspect]
     Active Substance: DIROXIMEL FUMARATE
     Indication: Multiple sclerosis
     Dosage: TAKE 1 CAPSULE BY MOUTH 2 TIMES PER DAY FOR 7 DAYS
     Dates: start: 20250721, end: 202508
  2. VUMERITY [Suspect]
     Active Substance: DIROXIMEL FUMARATE
     Dosage: THEN 2 CAPSULES TWICE DAILY THEREAFTER
     Dates: start: 202508

REACTIONS (3)
  - Nasopharyngitis [Unknown]
  - Multiple sclerosis [Unknown]
  - Hallucination [Recovered/Resolved]

NARRATIVE: CASE EVENT DATE: 20250101
